FAERS Safety Report 8261130-X (Version None)
Quarter: 2012Q2

REPORT INFORMATION
  Report Type: 
  Country: None (occurrence: None)
  Receive Date: 20120405
  Receipt Date: 20120402
  Transmission Date: 20120825
  Serious: Yes (Other)
  Sender: FDA-Public Use
  Company Number: PHEH2010US03123

PATIENT
  Sex: Male

DRUGS (25)
  1. LORTAB [Concomitant]
  2. CIPROFLOXACIN [Concomitant]
     Dosage: 500 MG, UNK
  3. MORPHINE [Concomitant]
     Dosage: 30 MG, UNK
  4. DIFLUPREDNATE [Concomitant]
  5. AREDIA [Suspect]
     Indication: HYPERCALCAEMIA OF MALIGNANCY
     Dosage: 90 MG, PRN
     Route: 042
  6. ALBUTEROL [Concomitant]
  7. ZOMETA [Suspect]
     Indication: HYPERCALCAEMIA OF MALIGNANCY
     Dosage: 4 MG, QMO
     Route: 042
     Dates: start: 20030101, end: 20090101
  8. FERROUS SULFATE TAB [Concomitant]
  9. DICLOFENAC SODIUM [Concomitant]
  10. PENICILLIN V POTASSIUM [Concomitant]
     Dosage: 500 MG, UNK
  11. WARFARIN SODIUM [Concomitant]
     Dosage: 5 MG, UNK
  12. DESONIDE [Concomitant]
  13. LEVAQUIN [Concomitant]
     Dosage: 500 MG,
     Route: 042
  14. ASPIRIN [Concomitant]
  15. ALLOPURINOL [Concomitant]
  16. GLUCOSAMINE W/CHONDROITIN [Concomitant]
  17. AVELOX [Concomitant]
     Dosage: 400 MG,
  18. HUMIBID [Concomitant]
  19. INDOMETHACIN [Concomitant]
  20. VELCADE [Concomitant]
     Dates: start: 20101206
  21. REVLIMID [Suspect]
     Dates: start: 20070901, end: 20080301
  22. DEXAMETHASONE [Concomitant]
     Dosage: 20 MG, QW
     Dates: start: 20080301, end: 20080901
  23. ULTRACET [Concomitant]
  24. TERAZOSIN HCL [Concomitant]
  25. CHLORHEXIDINE GLUCONATE [Concomitant]

REACTIONS (95)
  - LYMPHADENOPATHY [None]
  - GOUT [None]
  - VASCULAR CALCIFICATION [None]
  - PROSTATOMEGALY [None]
  - DIARRHOEA [None]
  - TENDERNESS [None]
  - EMOTIONAL DISTRESS [None]
  - HAEMOPTYSIS [None]
  - INTERVERTEBRAL DISC PROTRUSION [None]
  - NEUTROPENIA [None]
  - ABSCESS LIMB [None]
  - BLINDNESS [None]
  - HYPERKERATOSIS [None]
  - PANCREATIC CARCINOMA [None]
  - TONGUE ULCERATION [None]
  - PLEURAL EFFUSION [None]
  - PAIN [None]
  - LUNG INFILTRATION [None]
  - PANCYTOPENIA [None]
  - ANAEMIA [None]
  - DYSPLASTIC NAEVUS [None]
  - NEUROPATHY PERIPHERAL [None]
  - BUNDLE BRANCH BLOCK RIGHT [None]
  - RENAL FAILURE [None]
  - BLOOD CREATININE INCREASED [None]
  - ISCHAEMIC CARDIOMYOPATHY [None]
  - SPONDYLOLISTHESIS [None]
  - NEOPLASM MALIGNANT [None]
  - DYSPNOEA [None]
  - PAIN IN EXTREMITY [None]
  - ATELECTASIS [None]
  - HAND FRACTURE [None]
  - SPINAL OSTEOARTHRITIS [None]
  - OSTEONECROSIS [None]
  - ATRIAL FIBRILLATION [None]
  - SEPSIS [None]
  - LEUKAEMIA [None]
  - CATARACT [None]
  - JOINT SWELLING [None]
  - OEDEMA PERIPHERAL [None]
  - CARDIOMEGALY [None]
  - PNEUMONIA [None]
  - OSTEONECROSIS OF JAW [None]
  - ANXIETY [None]
  - RIB FRACTURE [None]
  - OSTEOARTHRITIS [None]
  - GANGRENE [None]
  - ARTERIOSCLEROSIS [None]
  - MUSCULOSKELETAL PAIN [None]
  - OSTEOPENIA [None]
  - LEUKOCYTOSIS [None]
  - CARBUNCLE [None]
  - FURUNCLE [None]
  - EAR DISORDER [None]
  - ERYTHEMA [None]
  - LIMB DISCOMFORT [None]
  - ENCEPHALOPATHY [None]
  - HYPERLIPIDAEMIA [None]
  - INFECTION [None]
  - CEREBROVASCULAR ACCIDENT [None]
  - CHEST PAIN [None]
  - COMPRESSION FRACTURE [None]
  - BACK PAIN [None]
  - BURSITIS [None]
  - RADIAL NERVE PALSY [None]
  - GAIT DISTURBANCE [None]
  - ROTATOR CUFF SYNDROME [None]
  - ACQUIRED DIAPHRAGMATIC EVENTRATION [None]
  - FATIGUE [None]
  - MALAISE [None]
  - CONSTIPATION [None]
  - INJURY [None]
  - DEFORMITY [None]
  - INTERVERTEBRAL DISC DEGENERATION [None]
  - OSTEOSCLEROSIS [None]
  - PARAESTHESIA [None]
  - ATROPHY [None]
  - DEEP VEIN THROMBOSIS [None]
  - NEURALGIA [None]
  - HYPOXIA [None]
  - PYREXIA [None]
  - DIZZINESS [None]
  - AORTIC DISORDER [None]
  - PULMONARY EMBOLISM [None]
  - LUMBAR SPINAL STENOSIS [None]
  - SCOLIOSIS [None]
  - MONOCLONAL IMMUNOGLOBULIN PRESENT [None]
  - HYPOAESTHESIA [None]
  - CELLULITIS [None]
  - CARDIAC FAILURE [None]
  - ANGIOPATHY [None]
  - DEAFNESS [None]
  - LACERATION [None]
  - TOE AMPUTATION [None]
  - FINGER AMPUTATION [None]
